FAERS Safety Report 5820217-9 (Version None)
Quarter: 2008Q3

REPORT INFORMATION
  Report Type: 
  Country: None (occurrence: None)
  Receive Date: 20080724
  Receipt Date: 20080723
  Transmission Date: 20090109
  Serious: Yes (Life-Threatening, Other)
  Sender: FDA-Public Use
  Company Number: PHEH1999US05503

PATIENT
  Sex: Male
  Weight: 74.3 kg

DRUGS (21)
  1. RAD 666 RAD+ [Suspect]
     Indication: RENAL TRANSPLANT
     Dosage: 1.5 MG, BID
     Route: 048
     Dates: start: 19981117
  2. SDZ RAD [Suspect]
     Indication: RENAL TRANSPLANT
     Dosage: 1 MG, BID
     Route: 048
     Dates: end: 20021209
  3. SDZ RAD [Suspect]
     Dosage: 1.5 MG, DAILY
     Route: 048
     Dates: start: 20021210
  4. SDZ RAD [Suspect]
     Dosage: .5 MG, BID
     Route: 048
     Dates: start: 20031215
  5. NEORAL [Suspect]
     Indication: RENAL TRANSPLANT
     Dosage: 125 MG / DAY
     Route: 048
     Dates: start: 20020509
  6. DELTASONE [Suspect]
     Indication: RENAL TRANSPLANT
     Dosage: 10 MG / DAY
     Route: 048
     Dates: start: 19991118
  7. TROGLITAZONE [Concomitant]
  8. LIPITOR [Concomitant]
  9. AMLODIPINE BESYLATE [Concomitant]
  10. HYDRALAZINE HCL [Concomitant]
  11. HYDROCHLOROTHIAZIDE [Concomitant]
  12. TENORMIN [Concomitant]
  13. ZOLOFT [Concomitant]
  14. BACTRIM [Concomitant]
  15. ASPIRIN [Concomitant]
  16. FUROSEMIDE [Concomitant]
  17. MICRONASE [Concomitant]
  18. VASOTEC [Concomitant]
  19. PIOGLITAZONE [Concomitant]
  20. CALCIUM CARBONATE [Concomitant]
  21. ETIDRONATE DISODIUM [Concomitant]

REACTIONS (8)
  - BASAL CELL CARCINOMA [None]
  - BOWEN'S DISEASE [None]
  - CONCOMITANT DISEASE PROGRESSION [None]
  - KERATOACANTHOMA [None]
  - MALIGNANT TUMOUR EXCISION [None]
  - SKIN GRAFT [None]
  - SKIN NEOPLASM EXCISION [None]
  - SQUAMOUS CELL CARCINOMA [None]
